FAERS Safety Report 12773549 (Version 1)
Quarter: 2016Q3

REPORT INFORMATION
  Report Type: Spontaneous
  Country: US (occurrence: US)
  Receive Date: 20160923
  Receipt Date: 20160923
  Transmission Date: 20161109
  Serious: Yes (Hospitalization, Other)
  Sender: FDA-Public Use
  Company Number: US-AMGEN-USASP2016126142

PATIENT
  Sex: Male

DRUGS (3)
  1. 5-FU [Suspect]
     Active Substance: FLUOROURACIL
     Indication: NEOPLASM MALIGNANT
     Dosage: UNK
     Route: 065
     Dates: end: 2015
  2. NEULASTA [Suspect]
     Active Substance: PEGFILGRASTIM
     Indication: WHITE BLOOD CELL COUNT DECREASED
     Dosage: UNK
     Route: 065
     Dates: end: 2015
  3. CISPLATIN. [Suspect]
     Active Substance: CISPLATIN
     Indication: NEOPLASM MALIGNANT
     Dosage: UNK
     Route: 065
     Dates: end: 2015

REACTIONS (2)
  - Neutropenia [Unknown]
  - Mucosal inflammation [Unknown]
